FAERS Safety Report 8163477-4 (Version None)
Quarter: 2012Q1

REPORT INFORMATION
  Report Type: 
  Country: None (occurrence: None)
  Receive Date: 20120224
  Receipt Date: 20120220
  Transmission Date: 20120608
  Serious: Yes (Other)
  Sender: FDA-Public Use
  Company Number: JP-EISAI INC-E2090-02006-SPO-JP

PATIENT
  Age: 50 Year
  Sex: Female

DRUGS (1)
  1. ZONISAMIDE [Suspect]
     Dosage: UNKNOWN
     Route: 048
     Dates: start: 20110501, end: 20110601

REACTIONS (3)
  - DRUG ERUPTION [None]
  - THROMBOCYTOPENIA [None]
  - LEUKOPENIA [None]
